FAERS Safety Report 14379086 (Version 2)
Quarter: 2018Q1

REPORT INFORMATION
  Report Type: Spontaneous
  Country: IT (occurrence: IT)
  Receive Date: 20180112
  Receipt Date: 20180114
  Transmission Date: 20180509
  Serious: Yes (Hospitalization)
  Sender: FDA-Public Use
  Company Number: IT-BRISTOL-MYERS SQUIBB COMPANY-BMS-2018-001336

PATIENT
  Age: 88 Year
  Sex: Male

DRUGS (1)
  1. APIXABAN [Suspect]
     Active Substance: APIXABAN
     Indication: PRODUCT USED FOR UNKNOWN INDICATION
     Dosage: 1 DF, (1 DAY INTERVAL)
     Route: 048

REACTIONS (4)
  - Asthenia [Unknown]
  - Injury [Unknown]
  - Clonus [Unknown]
  - Sopor [Unknown]

NARRATIVE: CASE EVENT DATE: 20171028
